FAERS Safety Report 9394231 (Version 2)
Quarter: 2013Q3

REPORT INFORMATION
  Report Type: Report from Study
  Country: CA (occurrence: CA)
  Receive Date: 20130711
  Receipt Date: 20130722
  Transmission Date: 20140515
  Serious: Yes (Other)
  Sender: FDA-Public Use
  Company Number: CA-ROCHE-1247247

PATIENT
  Age: 17 Year
  Sex: Female

DRUGS (4)
  1. RITUXAN [Suspect]
     Indication: DERMATOMYOSITIS
     Dosage: FREQUENCY:  DAY 1 AND DAY 15
     Route: 042
     Dates: start: 20121206
  2. RITUXAN [Suspect]
     Route: 065
     Dates: start: 20121221
  3. CELLCEPT [Suspect]
     Indication: PRODUCT USED FOR UNKNOWN INDICATION
     Route: 065
  4. PLAQUENIL [Concomitant]

REACTIONS (1)
  - Hyperthyroidism [Not Recovered/Not Resolved]
